FAERS Safety Report 9039019 (Version 1)
Quarter: 2013Q1

REPORT INFORMATION
  Report Type: Spontaneous
  Country: US (occurrence: None)
  Receive Date: 20130123
  Receipt Date: 20130123
  Transmission Date: 20140127
  Serious: No
  Sender: FDA-Public Use
  Company Number: None

PATIENT
  Age: 78 Year
  Sex: Female
  Weight: 56.7 kg

DRUGS (2)
  1. SCOPOLAMAINE [Suspect]
     Indication: MOTION SICKNESS
     Dates: start: 20121229, end: 20130102
  2. SCOPOLAMAINE [Suspect]
     Indication: PROPHYLAXIS
     Dates: start: 20121229, end: 20130102

REACTIONS (3)
  - Hallucination [None]
  - Speech disorder [None]
  - Balance disorder [None]
